FAERS Safety Report 9315013 (Version 2)
Quarter: 2013Q3

REPORT INFORMATION
  Report Type: Spontaneous
  Country: US (occurrence: US)
  Receive Date: 20130528
  Receipt Date: 20130910
  Transmission Date: 20140515
  Serious: Yes (Other)
  Sender: FDA-Public Use
  Company Number: US-RB-054308-13

PATIENT
  Age: 32 Year
  Sex: Female

DRUGS (4)
  1. SUBOXONE FILM [Suspect]
     Indication: DRUG DEPENDENCE
     Dosage: SUBOXONE FILM; DOSING DETAILS UNKNOWN, DAILY
     Route: 060
  2. SUBOXONE FILM [Suspect]
     Dosage: SUBOXONE FILM
     Route: 060
     Dates: start: 201305
  3. BUPRENORPHINE GENERIC [Suspect]
     Indication: DRUG DEPENDENCE
     Route: 060
  4. PRENATAL VITAMINS [Concomitant]
     Indication: PREGNANCY
     Route: 048

REACTIONS (4)
  - Maternal exposure during pregnancy [Recovered/Resolved]
  - Placenta praevia [Recovered/Resolved]
  - Wrong technique in drug usage process [Not Recovered/Not Resolved]
  - Substance abuse [Not Recovered/Not Resolved]
